FAERS Safety Report 7957431-2 (Version None)
Quarter: 2011Q4

REPORT INFORMATION
  Report Type: 
  Country: None (occurrence: None)
  Receive Date: 20111205
  Receipt Date: 20111125
  Transmission Date: 20120403
  Serious: Yes (Hospitalization)
  Sender: FDA-Public Use
  Company Number: JP-PFIZER INC-2011228757

PATIENT
  Age: 86 Year
  Sex: Male
  Weight: 59 kg

DRUGS (4)
  1. ESTRACYT [Suspect]
     Indication: PROSTATE CANCER
     Dosage: 313.4 MG/DAY
     Route: 048
     Dates: start: 20110603, end: 20110829
  2. ESTRACYT [Suspect]
     Dosage: 626.8 MG/DAY
     Route: 048
     Dates: start: 20110830, end: 20110915
  3. CELECOXIB [Concomitant]
     Dosage: 4 DF/DAY
     Route: 048
     Dates: start: 20110603, end: 20110915
  4. LEUPROLIDE ACETATE [Concomitant]
     Dosage: 3.75 MG/DAY
     Route: 058
     Dates: start: 20101224, end: 20110830

REACTIONS (1)
  - CARDIAC FAILURE [None]
